FAERS Safety Report 9377225 (Version 2)
Quarter: 2013Q3

REPORT INFORMATION
  Report Type: Spontaneous
  Country: FR (occurrence: FR)
  Receive Date: 20130701
  Receipt Date: 20130909
  Transmission Date: 20140515
  Serious: Yes (Other)
  Sender: FDA-Public Use
  Company Number: FR-009507513-1306FRA013644

PATIENT
  Sex: Male
  Weight: 1.26 kg

DRUGS (1)
  1. NEXPLANON [Suspect]
     Indication: CONTRACEPTION
     Dosage: UNK
     Route: 064
     Dates: start: 20120712, end: 20121026

REACTIONS (7)
  - Premature baby [Unknown]
  - Low birth weight baby [Unknown]
  - Convulsion [Unknown]
  - Neonatal respiratory distress syndrome [Unknown]
  - Pulmonary haemorrhage [Unknown]
  - Supraventricular tachycardia [Unknown]
  - Exposure during pregnancy [Unknown]
